FAERS Safety Report 8761607 (Version 2)
Quarter: 2012Q4

REPORT INFORMATION
  Report Type: 
  Country: DE (occurrence: DE)
  Receive Date: 20120828
  Receipt Date: 20120828
  Transmission Date: 20130627
  Serious: Yes (Death)
  Sender: FDA-Public Use
  Company Number: DE-BAXTER-501192

PATIENT
  Age: 23 None
  Sex: Male

DRUGS (1)
  1. HEMOFIL M [Suspect]
     Indication: HEMOPHILIA A
     Route: 065
     Dates: start: 1982, end: 1984

REACTIONS (8)
  - Hepatitis C [Fatal]
  - HIV test positive [Fatal]
  - Acquired immunodeficiency syndrome [Fatal]
  - Cerebrovascular accident [Unknown]
  - Agonal death struggle [Not Recovered/Not Resolved]
  - Pain [Unknown]
  - Depression [Unknown]
  - Visual acuity reduced [Unknown]
